FAERS Safety Report 8047514-3 (Version None)
Quarter: 2012Q1

REPORT INFORMATION
  Report Type: 
  Country: None (occurrence: None)
  Receive Date: 20120116
  Receipt Date: 20120113
  Transmission Date: 20120608
  Serious: Yes (Hospitalization)
  Sender: FDA-Public Use
  Company Number: CA-BAYER-2012-003449

PATIENT
  Sex: Male

DRUGS (3)
  1. ANTIHYPERTENSIVES [Concomitant]
     Indication: HYPERTENSION
  2. LEVITRA [Suspect]
     Dosage: 20 MG, UNK
     Dates: start: 20110101
  3. INSULIN [Concomitant]

REACTIONS (2)
  - THERAPEUTIC PRODUCT INEFFECTIVE [None]
  - LIVER DISORDER [None]
